FAERS Safety Report 9260039 (Version 1)
Quarter: 2013Q2

REPORT INFORMATION
  Report Type: Spontaneous
  Country: US (occurrence: US)
  Receive Date: 20130429
  Receipt Date: 20130429
  Transmission Date: 20140414
  Serious: Yes (Hospitalization)
  Sender: FDA-Public Use
  Company Number: US-BAYER-2013-051422

PATIENT
  Age: 40 Year
  Sex: Female
  Weight: 61.68 kg

DRUGS (12)
  1. YAZ [Suspect]
  2. YASMIN [Suspect]
  3. EFFEXOR XR [Concomitant]
     Dosage: 75 MG, QID
     Route: 048
     Dates: start: 20040614
  4. EFFEXOR [Concomitant]
     Dosage: 75 MG, QID
     Route: 048
     Dates: start: 20040614
  5. CALCIUM WITH VITAMIN D [Concomitant]
     Dosage: 1200 MG, UNK
  6. ZITHROMAX TRI-PAK [Concomitant]
     Dosage: 500 MG, UNK, TAKE AS DIRECTED
     Dates: start: 20040616
  7. VICODIN [Concomitant]
     Indication: PAIN
     Dosage: 5/500, 1 OR 2 TABLETS EVERY 6 HOURS AS NEEDED
     Route: 048
     Dates: start: 20040821, end: 20040903
  8. VICODIN [Concomitant]
     Indication: PAIN
  9. MOTRIN [Concomitant]
     Indication: PAIN
     Dosage: 600 MG, 1 TABLET FOUR TIMES A DAY AS NEEDED
     Route: 048
     Dates: start: 20040907
  10. MOTRIN [Concomitant]
     Indication: PAIN
     Dosage: 400 MG, UNK,EVERY 6 HOURS AS NEEDED
  11. MOTRIN [Concomitant]
     Indication: PAIN
     Dosage: 1 TO 2 TABLETS EVERY 4 HOURS
     Route: 048
     Dates: start: 20040907
  12. HYDROCODONE W/APAP [Concomitant]
     Dosage: 1 TO 2 TABLETS EVERY 4 HOURS
     Route: 048
     Dates: start: 20040907

REACTIONS (3)
  - Deep vein thrombosis [Recovering/Resolving]
  - Pelvic venous thrombosis [Recovered/Resolved]
  - Thrombophlebitis superficial [None]
